FAERS Safety Report 7743290-X (Version None)
Quarter: 2011Q3

REPORT INFORMATION
  Report Type: 
  Country: None (occurrence: None)
  Receive Date: 20110909
  Receipt Date: 20110909
  Transmission Date: 20111222
  Serious: No
  Sender: FDA-Public Use
  Company Number: None

PATIENT
  Sex: Female
  Weight: 78.9259 kg

DRUGS (2)
  1. NICOTROL [Suspect]
  2. NICOTROL [Suspect]
     Indication: SMOKING CESSATION THERAPY
     Dosage: 10 MG / 4 MG 1 PER 2 HR MOUTH
     Route: 048
     Dates: start: 20100412, end: 20110410

REACTIONS (4)
  - DRUG INEFFECTIVE [None]
  - MENTAL IMPAIRMENT [None]
  - EXPIRED DRUG ADMINISTERED [None]
  - UPPER LIMB FRACTURE [None]
